FAERS Safety Report 5904336-4 (Version None)
Quarter: 2008Q4

REPORT INFORMATION
  Report Type: 
  Country: None (occurrence: None)
  Receive Date: 20081001
  Receipt Date: 20080918
  Transmission Date: 20090506
  Serious: Yes (Other)
  Sender: FDA-Public Use
  Company Number: PHHY2008GB21785

PATIENT
  Sex: Female

DRUGS (1)
  1. CLOZARIL [Suspect]
     Dosage: UNK
     Dates: start: 20010522, end: 20080918

REACTIONS (7)
  - ABNORMAL BEHAVIOUR [None]
  - CATATONIA [None]
  - EMOTIONAL DISTRESS [None]
  - INSOMNIA [None]
  - MUSCLE RIGIDITY [None]
  - TOOTH REPAIR [None]
  - URINARY INCONTINENCE [None]
